FAERS Safety Report 6151778-0 (Version None)
Quarter: 2009Q2

REPORT INFORMATION
  Report Type: 
  Country: None (occurrence: None)
  Receive Date: 20090410
  Receipt Date: 20090331
  Transmission Date: 20091009
  Serious: Yes (Other)
  Sender: FDA-Public Use
  Company Number: US-ELI_LILLY_AND_COMPANY-US200903007855

PATIENT
  Age: 58 Year
  Sex: Female

DRUGS (7)
  1. GEMZAR [Suspect]
     Indication: BREAST CANCER
  2. PACLITAXEL [Concomitant]
     Indication: BREAST CANCER
  3. PERCOCET [Concomitant]
     Dosage: UNK, AS NEEDED
  4. SULFAMETHOXAZOLE AND TRIMETHOPRIM [Concomitant]
     Indication: URINARY TRACT INFECTION
  5. SENNA [Concomitant]
     Dosage: 100 MG, UNK
  6. LASIX [Concomitant]
     Dosage: UNK, DAILY (1/D)
  7. POTASSIUM CHLORIDE [Concomitant]
     Dosage: UNK, DAILY (1/D)

REACTIONS (8)
  - DYSPNOEA [None]
  - HEADACHE [None]
  - HYPOAESTHESIA [None]
  - NASAL CONGESTION [None]
  - OEDEMA PERIPHERAL [None]
  - PERINEAL PAIN [None]
  - URINARY INCONTINENCE [None]
  - URINE COLOUR ABNORMAL [None]
